FAERS Safety Report 11098382 (Version 1)
Quarter: 2015Q2

REPORT INFORMATION
  Report Type: Report from Study
  Country: IN (occurrence: IN)
  Receive Date: 20150507
  Receipt Date: 20150507
  Transmission Date: 20150821
  Serious: Yes (Death)
  Sender: FDA-Public Use
  Company Number: PHHY2015IN054714

PATIENT
  Sex: Female

DRUGS (1)
  1. EXELON PATCH [Suspect]
     Active Substance: RIVASTIGMINE
     Indication: DEMENTIA
     Dosage: 1 DF (15 CM), QD
     Route: 062
     Dates: start: 201301

REACTIONS (1)
  - Death [Fatal]

NARRATIVE: CASE EVENT DATE: 20150502
